FAERS Safety Report 6743983-7 (Version None)
Quarter: 2010Q2

REPORT INFORMATION
  Report Type: 
  Country: None (occurrence: None)
  Receive Date: 20100527
  Receipt Date: 20100518
  Transmission Date: 20101027
  Serious: Yes (Other)
  Sender: FDA-Public Use
  Company Number: A0856779A

PATIENT
  Sex: Male

DRUGS (2)
  1. ACITRETIN [Suspect]
     Indication: PSORIASIS
     Dosage: 25MG PER DAY
     Route: 048
     Dates: start: 20100301
  2. ALCOHOLIC BEVERAGE [Suspect]

REACTIONS (4)
  - CONDITION AGGRAVATED [None]
  - INJURY [None]
  - PSORIASIS [None]
  - WITHDRAWAL SYNDROME [None]
